FAERS Safety Report 22353638 (Version 1)
Quarter: 2023Q2

REPORT INFORMATION
  Report Type: Spontaneous
  Country: US (occurrence: US)
  Receive Date: 20230523
  Receipt Date: 20230523
  Transmission Date: 20230721
  Serious: No
  Sender: FDA-Public Use
  Company Number: US-ABBVIE-4763814

PATIENT

DRUGS (1)
  1. HUMIRA [Suspect]
     Active Substance: ADALIMUMAB
     Indication: Product used for unknown indication
     Route: 058
     Dates: start: 202206

REACTIONS (4)
  - Abdominal pain [Unknown]
  - Unevaluable event [Unknown]
  - Drug ineffective [Unknown]
  - Feeling abnormal [Unknown]
